FAERS Safety Report 8800030 (Version 1)
Quarter: 2012Q4

REPORT INFORMATION
  Report Type: 
  Country: BR (occurrence: BR)
  Receive Date: 20120921
  Receipt Date: 20120921
  Transmission Date: 20130627
  Serious: Yes (Other)
  Sender: FDA-Public Use
  Company Number: PHHY2012BR080510

PATIENT
  Age: 53 Year
  Sex: Male
  Weight: 85 kg

DRUGS (3)
  1. ENALAPRIL [Suspect]
     Indication: HYPERTENSION
     Dosage: 20 mg, daily
     Route: 048
  2. NIFEDIPINE [Concomitant]
     Dosage: 40 mg, daily
  3. HYDROCHLOROTHIAZIDE [Concomitant]
     Dosage: 12.5 mg, daily

REACTIONS (15)
  - Metabolic syndrome [Recovered/Resolved]
  - Diabetes mellitus [Recovered/Resolved]
  - Hypertriglyceridaemia [Recovered/Resolved]
  - Nocturia [Recovered/Resolved]
  - Polyuria [Recovered/Resolved]
  - Hyperphagia [Recovered/Resolved]
  - Weight decreased [Recovered/Resolved]
  - Dry mouth [Recovered/Resolved]
  - Vision blurred [Recovered/Resolved]
  - Muscle spasms [Recovered/Resolved]
  - Paraesthesia [Recovered/Resolved]
  - Polydipsia [Recovered/Resolved]
  - Blood cholesterol increased [Recovered/Resolved]
  - Hypertension [Recovered/Resolved]
  - Overweight [Recovered/Resolved]
